FAERS Safety Report 11074395 (Version 5)
Quarter: 2015Q2

REPORT INFORMATION
  Report Type: Report from Study
  Country: US (occurrence: US)
  Receive Date: 20150428
  Receipt Date: 20150612
  Transmission Date: 20150821
  Serious: Yes (Death)
  Sender: FDA-Public Use
  Company Number: US-AMGEN-USACT2015041192

PATIENT
  Age: 65 Year
  Sex: Male
  Weight: 91 kg

DRUGS (43)
  1. BYETTA [Concomitant]
     Active Substance: EXENATIDE
     Dosage: 100 MUG, BID
  2. XARELTO [Concomitant]
     Active Substance: RIVAROXABAN
     Dosage: UNK
  3. DEXAMETHASONE. [Suspect]
     Active Substance: DEXAMETHASONE
     Indication: PLASMA CELL MYELOMA
     Dosage: 80 MG, PER CHEMO REGIM
     Route: 065
     Dates: start: 20150331, end: 20150421
  4. TEMAZEPAM. [Concomitant]
     Active Substance: TEMAZEPAM
     Dosage: 30 MG, QD
     Route: 048
     Dates: start: 20110907
  5. VENLAFAXINE HYDROCHLORIDE. [Concomitant]
     Active Substance: VENLAFAXINE HYDROCHLORIDE
     Dosage: 75 TO 150 MG, QD
     Route: 048
     Dates: start: 20120811
  6. VOLTAREN [Concomitant]
     Active Substance: DICLOFENAC SODIUM
     Dosage: 2 TO 3 MG, TID
     Route: 062
     Dates: start: 20140825
  7. NITROGLYCERIN. [Concomitant]
     Active Substance: NITROGLYCERIN
     Dosage: 4 MG/HR, UNK
  8. OXYGEN. [Concomitant]
     Active Substance: OXYGEN
     Dosage: UNK
     Dates: start: 20070203
  9. CEFUROXIME. [Concomitant]
     Active Substance: CEFUROXIME
     Dosage: UNK
  10. LISINOPRIL. [Concomitant]
     Active Substance: LISINOPRIL
     Dosage: 40 MG, QD
     Route: 048
     Dates: start: 20090827
  11. NIVEA                              /01338601/ [Concomitant]
     Dosage: UNK UNK, TID
     Dates: start: 20110414
  12. SULFASALAZINE. [Concomitant]
     Active Substance: SULFASALAZINE
     Dosage: 500 MG, BID
     Route: 048
     Dates: start: 20140910
  13. MUCINEX [Concomitant]
     Active Substance: GUAIFENESIN
     Dosage: 60 MG, BID
  14. PROPRANOLOL HCL [Concomitant]
     Active Substance: PROPRANOLOL HYDROCHLORIDE
     Indication: TREMOR
     Dosage: 40 MG, QID
     Route: 048
  15. VALTREX [Concomitant]
     Active Substance: VALACYCLOVIR HYDROCHLORIDE
     Dosage: 1 G, TID
     Dates: start: 20100223
  16. INDERAL [Concomitant]
     Active Substance: PROPRANOLOL HYDROCHLORIDE
     Dosage: UNK
     Dates: start: 20070203
  17. INFLUENZA VACCINE [Concomitant]
     Active Substance: INFLUENZA VIRUS VACCINE
     Dosage: UNK
  18. ZOCOR [Concomitant]
     Active Substance: SIMVASTATIN
     Dosage: 40 MG, QD
  19. AMLODIPINE BESYLATE. [Concomitant]
     Active Substance: AMLODIPINE BESYLATE
     Dosage: 5 MG, QD
     Route: 048
     Dates: start: 20110705
  20. AMMONIUM LACTATE. [Concomitant]
     Active Substance: AMMONIUM LACTATE
     Dosage: UNK UNK, BID
     Dates: start: 20110414
  21. FLUOCINONIDE. [Concomitant]
     Active Substance: FLUOCINONIDE
     Dosage: UNK UNK, BID
     Dates: start: 20100712
  22. LOVENOX [Concomitant]
     Active Substance: ENOXAPARIN SODIUM
     Dosage: 100 MG, BID
     Route: 058
     Dates: start: 20070203
  23. LOPRESSOR [Concomitant]
     Active Substance: METOPROLOL TARTRATE
     Indication: ELECTROCARDIOGRAM ABNORMAL
  24. LIQUID NITROGEN [Concomitant]
     Active Substance: NITROGEN
     Indication: ACTINIC KERATOSIS
     Dosage: UNK
  25. HYDROCODONE BITARTRATE AND ACETAMINOPHEN [Concomitant]
     Active Substance: ACETAMINOPHEN\HYDROCODONE BITARTRATE
     Indication: PAIN
     Dosage: UNK UNK, TID AS NEEDED
     Route: 048
     Dates: start: 20110705
  26. COUMADIN [Concomitant]
     Active Substance: WARFARIN SODIUM
     Dosage: 5  TO 10 MG, QD
     Dates: start: 20070203
  27. HCTZ [Concomitant]
     Active Substance: HYDROCHLOROTHIAZIDE
     Dosage: 25 MG, QD
  28. ATORVASTATIN [Concomitant]
     Active Substance: ATORVASTATIN
     Dosage: 40 MG, UNK
  29. CARFILZOMIB [Suspect]
     Active Substance: CARFILZOMIB
     Indication: PLASMA CELL MYELOMA
     Dosage: 246 MG, PER CHEMO REGIM
     Route: 042
     Dates: start: 20141111, end: 20150415
  30. LENALIDOMIDE [Suspect]
     Active Substance: LENALIDOMIDE
     Indication: PLASMA CELL MYELOMA
     Dosage: 210 MG, PER CHEMO REGIM
     Route: 065
     Dates: start: 20150331, end: 20150420
  31. OMEPRAZOLE. [Concomitant]
     Active Substance: OMEPRAZOLE
     Dosage: 20 MG, QD
     Route: 048
     Dates: start: 20090506
  32. PRAVASTATIN SODIUM. [Concomitant]
     Active Substance: PRAVASTATIN SODIUM
     Dosage: 40 MG, QD
     Route: 048
     Dates: start: 20140825
  33. LOPRESSOR [Concomitant]
     Active Substance: METOPROLOL TARTRATE
     Indication: CORONARY ARTERY DISEASE
     Dosage: 50 MG, BID
     Dates: start: 20070203
  34. ACIPHEX [Concomitant]
     Active Substance: RABEPRAZOLE SODIUM
     Dosage: 20 MG, QD
  35. ACTOS [Concomitant]
     Active Substance: PIOGLITAZONE HYDROCHLORIDE
     Dosage: 30 MG, QD
  36. METFORMIN [Concomitant]
     Active Substance: METFORMIN HYDROCHLORIDE
     Dosage: 100 MG, BID
  37. FLUOROURACIL. [Concomitant]
     Active Substance: FLUOROURACIL
     Dosage: UNK UNK, QHS FOR 2 TO 3 WEEKS
  38. GLIMEPIRIDE. [Concomitant]
     Active Substance: GLIMEPIRIDE
     Dosage: 1 MG, UNK
     Route: 048
     Dates: start: 20141027
  39. PENNSAID [Concomitant]
     Active Substance: DICLOFENAC SODIUM
     Dosage: 10 TO 20 DROPS
     Route: 062
     Dates: start: 20121015
  40. TUSSICAPS [Concomitant]
     Active Substance: CHLORPHENIRAMINE\CHLORPHENIRAMINE MALEATE\HYDROCODONE\HYDROCODONE BITARTRATE
     Dosage: 4 TO 5 MG, Q12H
  41. ALBUTEROL                          /00139501/ [Concomitant]
     Active Substance: ALBUTEROL
     Dosage: 90 MUG, 2 PUFFS EVERY 4 TO 6 HRS
  42. CELEBREX [Concomitant]
     Active Substance: CELECOXIB
     Dosage: 20 MG, QD
     Route: 048
  43. DOXAZOSIN MESYLATE. [Concomitant]
     Active Substance: DOXAZOSIN MESYLATE
     Dosage: 4 MG, QD

REACTIONS (1)
  - Myocardial infarction [Fatal]

NARRATIVE: CASE EVENT DATE: 20150423
